FAERS Safety Report 17184545 (Version 3)
Quarter: 2020Q4

REPORT INFORMATION
  Report Type: Spontaneous
  Country: US (occurrence: US)
  Receive Date: 20191220
  Receipt Date: 20201210
  Transmission Date: 20210113
  Serious: No
  Sender: FDA-Public Use
  Company Number: US-PFIZER INC-2019549444

PATIENT
  Age: 76 Year
  Sex: Male

DRUGS (2)
  1. XELJANZ [Suspect]
     Active Substance: TOFACITINIB CITRATE
     Indication: SWELLING
  2. XELJANZ [Suspect]
     Active Substance: TOFACITINIB CITRATE
     Indication: PAIN
     Dosage: 10 MG, 2X/DAY
     Dates: start: 201701

REACTIONS (2)
  - Off label use [Unknown]
  - Pain [Not Recovered/Not Resolved]

NARRATIVE: CASE EVENT DATE: 201701
